FAERS Safety Report 8077073-0 (Version None)
Quarter: 2012Q1

REPORT INFORMATION
  Report Type: 
  Country: None (occurrence: None)
  Receive Date: 20120127
  Receipt Date: 20120117
  Transmission Date: 20120608
  Serious: Yes (Other)
  Sender: FDA-Public Use
  Company Number: FR-UCBSA-050038

PATIENT
  Age: 54 Year
  Sex: Male

DRUGS (4)
  1. CIMZIA [Suspect]
     Indication: RHEUMATOID ARTHRITIS
     Route: 058
     Dates: start: 20110701, end: 20120101
  2. HYPERIUM [Concomitant]
     Indication: HYPERTENSION
     Route: 048
  3. IRBESARTAN + HYDROCHLOROTHIAZIDE [Concomitant]
     Indication: HYPERTENSION
     Dosage: 300MG/25MG
     Route: 048
  4. ASPIRIN [Concomitant]
     Dosage: DAILY DOSE : 75 MG
     Route: 048

REACTIONS (1)
  - ARTERITIS CORONARY [None]
